FAERS Safety Report 7768655 (Version 9)
Quarter: 2013Q2

REPORT INFORMATION
  Report Type: Report from Study
  Country: GB (occurrence: GB)
  Receive Date: 20110121
  Receipt Date: 20130424
  Transmission Date: 20140414
  Serious: Yes (Death, Life-Threatening, Hospitalization, Other)
  Sender: FDA-Public Use
  Company Number: PHHO2010GB17228

PATIENT
  Age: 57 Year
  Sex: Female
  Weight: 51.5 kg

DRUGS (7)
  1. CGP 57148B [Suspect]
     Indication: PULMONARY ARTERIAL HYPERTENSION
     Dosage: CODE NOT BROKEN
     Route: 048
     Dates: start: 20101028, end: 20101109
  2. ILOPROST [Concomitant]
     Indication: PULMONARY ARTERIAL HYPERTENSION
     Dosage: 4 UG/HR, UNK
     Route: 042
     Dates: start: 20101119
  3. DIURETICS [Concomitant]
  4. FUROSEMIDE [Concomitant]
     Indication: DIURETIC THERAPY
     Dosage: 80 MG, QD
     Dates: start: 2008, end: 20101203
  5. SPIRONOLACTONE [Concomitant]
     Indication: DIURETIC THERAPY
     Dosage: 25 MG, QD
     Dates: start: 2008, end: 20101203
  6. AMBRISENTAN [Concomitant]
     Indication: PULMONARY ARTERIAL HYPERTENSION
     Dosage: 5 MG, QD
     Dates: start: 2009, end: 20101203
  7. SILDENAFIL [Concomitant]
     Indication: PULMONARY ARTERIAL HYPERTENSION
     Dosage: 50 MG, TDS
     Dates: start: 2008, end: 20101203

REACTIONS (5)
  - Subdural haematoma [Fatal]
  - Asthenia [Fatal]
  - Unresponsive to stimuli [Fatal]
  - Renal impairment [Unknown]
  - Hyponatraemia [Unknown]
